FAERS Safety Report 10697419 (Version 1)
Quarter: 2015Q1

REPORT INFORMATION
  Report Type: Spontaneous
  Country: GB (occurrence: GB)
  Receive Date: 20150108
  Receipt Date: 20150108
  Transmission Date: 20150721
  Serious: Yes (Other)
  Sender: FDA-Public Use
  Company Number: GB-009507513-1501GBR001260

PATIENT
  Sex: Female

DRUGS (1)
  1. EZETROL [Suspect]
     Active Substance: EZETIMIBE
     Dosage: TAKEN FOR A NUMBER OF YEARS.
     Route: 048
     Dates: end: 201409

REACTIONS (5)
  - Sensory disturbance [Recovering/Resolving]
  - Suicidal ideation [Recovering/Resolving]
  - Muscular weakness [Not Recovered/Not Resolved]
  - Crying [Recovering/Resolving]
  - Anxiety [Recovering/Resolving]
